FAERS Safety Report 5322388-X (Version None)
Quarter: 2007Q2

REPORT INFORMATION
  Report Type: 
  Country: None (occurrence: None)
  Receive Date: 20070511
  Receipt Date: 20070501
  Transmission Date: 20071010
  Serious: Yes (Hospitalization)
  Sender: FDA-Public Use
  Company Number: US-ELI_LILLY_AND_COMPANY-US200704006375

PATIENT
  Sex: Female

DRUGS (3)
  1. FORTEO [Suspect]
     Indication: OSTEOPOROSIS
     Dosage: UNK, UNK
     Dates: start: 20070201, end: 20070427
  2. FORTEO [Suspect]
     Dates: start: 20070501
  3. PREVACID [Concomitant]
     Indication: BARRETT'S OESOPHAGUS

REACTIONS (1)
  - CHEST PAIN [None]
